FAERS Safety Report 10491952 (Version 1)
Quarter: 2014Q4

REPORT INFORMATION
  Report Type: Spontaneous
  Country: US (occurrence: US)
  Receive Date: 20141002
  Receipt Date: 20141002
  Transmission Date: 20150528
  Serious: No
  Sender: FDA-Public Use
  Company Number: US-GLAXOSMITHKLINE-A1062706A

PATIENT
  Sex: Male

DRUGS (5)
  1. NASAL SPRAY [Concomitant]
     Active Substance: UNSPECIFIED INGREDIENT
  2. FLECAINIDE [Concomitant]
     Active Substance: FLECAINIDE
  3. ADVAIR HFA [Suspect]
     Active Substance: FLUTICASONE PROPIONATE\SALMETEROL XINAFOATE
     Indication: DYSPNOEA
     Route: 055
     Dates: start: 2008
  4. HEART MEDICATION [Concomitant]
     Active Substance: UNSPECIFIED INGREDIENT
  5. WARFARIN [Concomitant]
     Active Substance: WARFARIN

REACTIONS (2)
  - Therapeutic response unexpected [Unknown]
  - Dyspnoea [Unknown]
